FAERS Safety Report 24195206 (Version 2)
Quarter: 2024Q3

REPORT INFORMATION
  Report Type: Spontaneous
  Country: CN (occurrence: CN)
  Receive Date: 20240809
  Receipt Date: 20240821
  Transmission Date: 20241016
  Serious: Yes (Hospitalization)
  Sender: BLUEPRINT MEDICINES
  Company Number: CN-CSTONE PHARMACEUTICALS (SUZHOU) CO., LTD.-2024CN01024

PATIENT
  Age: 35 Year
  Sex: Male

DRUGS (1)
  1. AYVAKIT [Suspect]
     Active Substance: AVAPRITINIB
     Indication: Indolent systemic mastocytosis
     Dosage: 25 MILLIGRAM, QD
     Route: 048
     Dates: start: 20240624

REACTIONS (7)
  - Transient ischaemic attack [Recovering/Resolving]
  - Hydrocephalus [Recovering/Resolving]
  - Supraventricular extrasystoles [Recovering/Resolving]
  - Hypokalaemia [Recovering/Resolving]
  - Haematospermia [Unknown]
  - Off label use [Unknown]
  - Off label use [Unknown]

NARRATIVE: CASE EVENT DATE: 20240624
